FAERS Safety Report 17153139 (Version 1)
Quarter: 2019Q4

REPORT INFORMATION
  Report Type: Spontaneous
  Country: FR (occurrence: FR)
  Receive Date: 20191213
  Receipt Date: 20191213
  Transmission Date: 20200122
  Serious: Yes (Hospitalization)
  Sender: FDA-Public Use
  Company Number: FR-MYLANLABS-2019M1122599

PATIENT
  Age: 32 Year
  Sex: Male
  Weight: 93 kg

DRUGS (7)
  1. VENLAFAXINE [Suspect]
     Active Substance: VENLAFAXINE HYDROCHLORIDE
     Indication: DEPRESSION
     Dosage: 225 MILLIGRAM, QD
     Route: 048
  2. ALPRAZOLAM. [Concomitant]
     Active Substance: ALPRAZOLAM
     Dosage: UNK
  3. NOCERTONE [Concomitant]
     Active Substance: OXETORONE
     Dosage: UNK
  4. RISPERDAL [Suspect]
     Active Substance: RISPERIDONE
     Indication: DEPRESSION
     Dosage: 1 MILLIGRAM, QD
     Route: 048
  5. MIRTAZAPINE. [Concomitant]
     Active Substance: MIRTAZAPINE
     Indication: DEPRESSION
     Dosage: 30 MILLIGRAM, QD
     Route: 048
  6. LAROXYL [Concomitant]
     Active Substance: AMITRIPTYLINE HYDROCHLORIDE
     Dosage: UNK
  7. THERALEN [Concomitant]
     Active Substance: TRIMEPRAZINE
     Dosage: UNK

REACTIONS (4)
  - Diabetes mellitus [Recovered/Resolved with Sequelae]
  - Diabetes insipidus [Recovered/Resolved]
  - Weight decreased [Recovered/Resolved]
  - Insulin resistance [Recovered/Resolved with Sequelae]

NARRATIVE: CASE EVENT DATE: 201602
